FAERS Safety Report 8776392 (Version 1)
Quarter: 2012Q4

REPORT INFORMATION
  Report Type: 
  Country: US (occurrence: US)
  Receive Date: 20120907
  Receipt Date: 20120907
  Transmission Date: 20130627
  Serious: Yes (Other)
  Sender: FDA-Public Use
  Company Number: US-PFIZER INC-2012216631

PATIENT
  Age: 78 Year
  Sex: Female

DRUGS (1)
  1. XALATAN [Suspect]
     Dosage: 2 gtt qhs ou (both eyes)

REACTIONS (8)
  - Glaucoma [Unknown]
  - Compression fracture [Unknown]
  - Rheumatoid arthritis [Unknown]
  - Pneumonia [Unknown]
  - Emphysema [Unknown]
  - Chronic obstructive pulmonary disease [Unknown]
  - Bronchitis chronic [Unknown]
  - Osteoarthritis [Unknown]
